FAERS Safety Report 18591731 (Version 1)
Quarter: 2020Q4

REPORT INFORMATION
  Report Type: Spontaneous
  Country: US (occurrence: US)
  Receive Date: 20201208
  Receipt Date: 20201208
  Transmission Date: 20210114
  Serious: Yes (Life-Threatening, Hospitalization, Other)
  Sender: FDA-Public Use
  Company Number: US-BRISTOL-MYERS SQUIBB COMPANY-BMS-2020-104417

PATIENT
  Age: 70 Year
  Sex: Male

DRUGS (2)
  1. NIVOLUMAB [Suspect]
     Active Substance: NIVOLUMAB
     Indication: METASTATIC RENAL CELL CARCINOMA
     Route: 065
  2. IPILIMUMAB [Suspect]
     Active Substance: IPILIMUMAB
     Indication: METASTATIC RENAL CELL CARCINOMA
     Dosage: UNK
     Route: 065

REACTIONS (6)
  - Hepatitis [Recovered/Resolved]
  - Immune-mediated myocarditis [Recovered/Resolved]
  - Immune-mediated gastritis [Unknown]
  - Myasthenia gravis [Not Recovered/Not Resolved]
  - Myositis [Recovered/Resolved]
  - Respiratory failure [Not Recovered/Not Resolved]
